FAERS Safety Report 16875995 (Version 2)
Quarter: 2022Q1

REPORT INFORMATION
  Report Type: Spontaneous
  Country: US (occurrence: US)
  Receive Date: 20191002
  Receipt Date: 20220209
  Transmission Date: 20220423
  Serious: No
  Sender: FDA-Public Use
  Company Number: US-GW PHARMA-201907USGW2734

PATIENT

DRUGS (2)
  1. EPIDIOLEX [Suspect]
     Active Substance: CANNABIDIOL
     Indication: Lennox-Gastaut syndrome
     Dosage: 250 MILLIGRAM, BID
     Route: 048
     Dates: start: 20190501, end: 201907
  2. EPIDIOLEX [Suspect]
     Active Substance: CANNABIDIOL
     Dosage: 250 MILLIGRAM, BID
     Route: 048
     Dates: start: 201907

REACTIONS (2)
  - Seizure [Unknown]
  - Product supply issue [Unknown]

NARRATIVE: CASE EVENT DATE: 20190701
